FAERS Safety Report 5754045-X (Version None)
Quarter: 2008Q2

REPORT INFORMATION
  Report Type: 
  Country: None (occurrence: None)
  Receive Date: 20080530
  Receipt Date: 20080521
  Transmission Date: 20081010
  Serious: Yes (Hospitalization)
  Sender: FDA-Public Use
  Company Number: PHHY2008JP08616

PATIENT

DRUGS (7)
  1. DIOVAN [Suspect]
     Indication: HYPERTENSION
     Dosage: UNK
     Route: 048
     Dates: start: 20080425, end: 20080501
  2. SEIBULE [Suspect]
     Indication: DRUG HYPERSENSITIVITY
     Dosage: UNK
     Dates: start: 20080425, end: 20080501
  3. LOXONIN [Concomitant]
     Dosage: UNK
     Route: 048
     Dates: start: 20080408, end: 20080425
  4. APLACE [Concomitant]
     Dosage: UNK
     Dates: start: 20080408, end: 20080425
  5. GENINAX [Concomitant]
     Dosage: UNK
     Route: 048
     Dates: start: 20080408, end: 20080425
  6. CONIEL [Suspect]
     Dosage: UNK
     Route: 048
     Dates: start: 20080408, end: 20080410
  7. CALBLOCK [Concomitant]
     Dosage: UNK
     Route: 048
     Dates: start: 20080410, end: 20080425

REACTIONS (3)
  - RASH GENERALISED [None]
  - SKIN EXFOLIATION [None]
  - THIRST [None]
